FAERS Safety Report 7767419-2 (Version None)
Quarter: 2011Q3

REPORT INFORMATION
  Report Type: 
  Country: None (occurrence: None)
  Receive Date: 20110922
  Receipt Date: 20100726
  Transmission Date: 20111222
  Serious: Yes (Other)
  Sender: FDA-Public Use
  Company Number: US-ASTRAZENECA-2010SE34740

PATIENT
  Age: 60 Year
  Sex: Male

DRUGS (4)
  1. SEROQUEL [Suspect]
     Route: 048
     Dates: start: 20091101
  2. CYMBALTA [Suspect]
     Route: 048
  3. SEROQUEL [Suspect]
     Route: 048
  4. CYMBALTA [Suspect]
     Indication: MAJOR DEPRESSION
     Route: 048
     Dates: start: 20100501

REACTIONS (2)
  - HYPOTENSION [None]
  - LOSS OF CONSCIOUSNESS [None]
